FAERS Safety Report 13634298 (Version 1)
Quarter: 2017Q2

REPORT INFORMATION
  Report Type: Spontaneous
  Country: US (occurrence: US)
  Receive Date: 20170531
  Receipt Date: 20170531
  Transmission Date: 20170830
  Serious: No
  Sender: FDA-Public Use
  Company Number: US-ASTELLAS-1618920

PATIENT
  Sex: Male

DRUGS (3)
  1. CARBOPLATIN. [Suspect]
     Active Substance: CARBOPLATIN
     Indication: PRODUCT USED FOR UNKNOWN INDICATION
     Route: 065
  2. AVASTIN [Suspect]
     Active Substance: BEVACIZUMAB
     Indication: CHOLANGIOCARCINOMA
     Route: 065
  3. TARCEVA [Suspect]
     Active Substance: ERLOTINIB HYDROCHLORIDE
     Indication: CHOLANGIOCARCINOMA
     Route: 065

REACTIONS (8)
  - Abdominal distension [Unknown]
  - Neutropenic colitis [Unknown]
  - Diarrhoea [Unknown]
  - Platelet count decreased [Unknown]
  - Intestinal obstruction [Unknown]
  - Vomiting [Unknown]
  - Haematochezia [Unknown]
  - Constipation [Unknown]
